FAERS Safety Report 8426412-7 (Version None)
Quarter: 2012Q2

REPORT INFORMATION
  Report Type: 
  Country: None (occurrence: None)
  Receive Date: 20120518
  Receipt Date: 20120510
  Transmission Date: 20120825
  Serious: Yes (Other)
  Sender: FDA-Public Use
  Company Number: CA-145270

PATIENT
  Sex: Male
  Weight: 48 kg

DRUGS (8)
  1. RIBAVIRIN [Concomitant]
  2. PEGINTERFERON ALFA-2A [Concomitant]
  3. PREDNISONE [Concomitant]
  4. EPOGEN [Concomitant]
  5. APO-CYCLOSPORINE [Concomitant]
  6. WINRHO SDF [Suspect]
     Indication: IDIOPATHIC THROMBOCYTOPENIC PURPURA
     Dosage: (73 UG/KG TOTAL)
     Dates: start: 20111215, end: 20111215
  7. WINRHO SDF [Suspect]
     Indication: IDIOPATHIC THROMBOCYTOPENIC PURPURA
     Dosage: (73 UG/KG TOTAL)
     Dates: start: 20111215, end: 20111215
  8. WINRHO SDF [Suspect]

REACTIONS (3)
  - CHILLS [None]
  - OVERDOSE [None]
  - HAEMOLYTIC TRANSFUSION REACTION [None]
